FAERS Safety Report 15630255 (Version 1)
Quarter: 2018Q4

REPORT INFORMATION
  Report Type: Spontaneous
  Country: US (occurrence: US)
  Receive Date: 20181117
  Receipt Date: 20181117
  Transmission Date: 20190205
  Serious: Yes (Other)
  Sender: FDA-Public Use
  Company Number: None

PATIENT
  Age: 43 Year
  Sex: Female
  Weight: 45 kg

DRUGS (1)
  1. AIMOVIG [Suspect]
     Active Substance: ERENUMAB-AOOE
     Indication: MIGRAINE
     Dosage: ?          QUANTITY:1 INJECTION(S);OTHER FREQUENCY:MONTHLY;?
     Route: 058
     Dates: start: 20180615

REACTIONS (7)
  - Arthralgia [None]
  - Muscle spasms [None]
  - Nausea [None]
  - Decreased appetite [None]
  - Headache [None]
  - Constipation [None]
  - Insomnia [None]

NARRATIVE: CASE EVENT DATE: 20180615
